FAERS Safety Report 10136575 (Version 1)
Quarter: 2014Q2

REPORT INFORMATION
  Report Type: Spontaneous
  Country: GB (occurrence: None)
  Receive Date: 20140425
  Receipt Date: 20140425
  Transmission Date: 20141212
  Serious: Yes (Life-Threatening)
  Sender: FDA-Public Use
  Company Number: FK201401477

PATIENT
  Age: 47 Year
  Sex: Female

DRUGS (4)
  1. PACLITAXEL [Suspect]
     Indication: BREAST CANCER
     Route: 042
     Dates: start: 20130618, end: 20130903
  2. PROPOFOL [Suspect]
     Indication: INDUCTION OF ANAESTHESIA
  3. MIDAZOLAM [Suspect]
     Indication: INDUCTION OF ANAESTHESIA
  4. FENTANYL [Suspect]
     Indication: INDUCTION OF ANAESTHESIA

REACTIONS (1)
  - Anaphylactic reaction [None]
